FAERS Safety Report 17720059 (Version 1)
Quarter: 2020Q2

REPORT INFORMATION
  Report Type: Spontaneous
  Country: ES (occurrence: ES)
  Receive Date: 20200428
  Receipt Date: 20200428
  Transmission Date: 20200714
  Serious: Yes (Life-Threatening)
  Sender: FDA-Public Use
  Company Number: ES-MYLANLABS-2020M1042242

PATIENT
  Age: 27 Year
  Sex: Male

DRUGS (1)
  1. GLATIRAMERO MYLAN 40 MG/ML SOLUCION INYECTABLE EN JERINGA [Suspect]
     Active Substance: GLATIRAMER
     Indication: MULTIPLE SCLEROSIS
     Dosage: 40 MILLIGRAM, QOD,40 MG SC 3 VECES POR SEMANA
     Route: 058
     Dates: start: 20191107, end: 20200307

REACTIONS (4)
  - Abdominal pain upper [Recovered/Resolved]
  - Anaphylactic reaction [Recovered/Resolved]
  - Dyspnoea [Recovered/Resolved]
  - Face oedema [Recovered/Resolved]

NARRATIVE: CASE EVENT DATE: 20200307
